FAERS Safety Report 17870423 (Version 1)
Quarter: 2020Q2

REPORT INFORMATION
  Report Type: Spontaneous
  Country: US (occurrence: US)
  Receive Date: 20200606
  Receipt Date: 20200606
  Transmission Date: 20200714
  Serious: No
  Sender: FDA-Public Use
  Company Number: None

PATIENT
  Age: 41 Year
  Sex: Male
  Weight: 85.5 kg

DRUGS (3)
  1. DAILY MULTIVITAMIN [Concomitant]
     Active Substance: VITAMINS
  2. FAMOTIDINE TABLETS, 20MG [Suspect]
     Active Substance: FAMOTIDINE
     Indication: DYSPEPSIA
     Route: 048
     Dates: start: 20200604, end: 20200605
  3. FAMOTIDINE TABLETS, 20MG [Suspect]
     Active Substance: FAMOTIDINE
     Indication: GASTROOESOPHAGEAL REFLUX DISEASE
     Route: 048
     Dates: start: 20200604, end: 20200605

REACTIONS (5)
  - Vomiting [None]
  - Dizziness [None]
  - Nausea [None]
  - Balance disorder [None]
  - Heart rate decreased [None]

NARRATIVE: CASE EVENT DATE: 20200605
